FAERS Safety Report 6546250-X (Version None)
Quarter: 2010Q1

REPORT INFORMATION
  Report Type: 
  Country: None (occurrence: None)
  Receive Date: 20100122
  Receipt Date: 20091222
  Transmission Date: 20100710
  Serious: No
  Sender: FDA-Public Use
  Company Number: US-BAYER-201010307NA

PATIENT
  Age: 87 Year
  Sex: Female

DRUGS (1)
  1. AVELOX [Suspect]
     Indication: SINUS DISORDER
     Dates: start: 20091201, end: 20091221

REACTIONS (1)
  - CONFUSIONAL STATE [None]
